FAERS Safety Report 7314111-4 (Version None)
Quarter: 2011Q1

REPORT INFORMATION
  Report Type: 
  Country: None (occurrence: None)
  Receive Date: 20110225
  Receipt Date: 20100524
  Transmission Date: 20110831
  Serious: No
  Sender: FDA-Public Use
  Company Number: US-MYLANLABS-2010S1007984

PATIENT
  Age: 17 Year
  Sex: Male
  Weight: 99.79 kg

DRUGS (3)
  1. AMNESTEEM [Suspect]
     Indication: ACNE CYSTIC
     Dates: end: 20100419
  2. CLARAVIS [Suspect]
     Indication: ACNE CYSTIC
  3. CLARAVIS [Suspect]

REACTIONS (2)
  - BLOOD TRIGLYCERIDES INCREASED [None]
  - TREATMENT NONCOMPLIANCE [None]
